FAERS Safety Report 19220655 (Version 1)
Quarter: 2021Q2

REPORT INFORMATION
  Report Type: Spontaneous
  Country: US (occurrence: US)
  Receive Date: 20210506
  Receipt Date: 20210506
  Transmission Date: 20210717
  Serious: No
  Sender: FDA-Public Use
  Company Number: US-009507513-2104USA001519

PATIENT
  Age: 44 Year
  Sex: Female

DRUGS (2)
  1. PROVENTIL [Suspect]
     Active Substance: ALBUTEROL
     Indication: ASTHMA
     Dosage: 108 MICROGRAM
  2. PROVENTIL [Suspect]
     Active Substance: ALBUTEROL
     Indication: ASTHMA
     Dosage: 108 MICROGRAM

REACTIONS (3)
  - Device malfunction [Unknown]
  - No adverse event [Unknown]
  - Device use issue [Unknown]

NARRATIVE: CASE EVENT DATE: 202103
